FAERS Safety Report 21577949 (Version 3)
Quarter: 2025Q1

REPORT INFORMATION
  Report Type: Spontaneous
  Country: US (occurrence: US)
  Receive Date: 20221110
  Receipt Date: 20250106
  Transmission Date: 20250409
  Serious: Yes (Other)
  Sender: PFIZER
  Company Number: US-PFIZER INC-2020396976

PATIENT
  Age: 65 Year
  Sex: Female
  Weight: 93.44 kg

DRUGS (12)
  1. XELJANZ XR [Suspect]
     Active Substance: TOFACITINIB CITRATE
     Indication: Rheumatoid arthritis
     Dosage: 11 MG, DAILY
     Route: 048
     Dates: start: 20201108
  2. XELJANZ XR [Suspect]
     Active Substance: TOFACITINIB CITRATE
     Dosage: (11MG ONCE A DAY BY MOUTH AT NIGHT)
     Route: 048
     Dates: start: 2022
  3. PANTOPRAZOLE [Concomitant]
     Active Substance: PANTOPRAZOLE
     Indication: Gastrooesophageal reflux disease
     Dosage: (40MG 1 TABLET TWICE A DAY BY MOUTH)
     Route: 048
     Dates: start: 2018
  4. DULOXETINE [Concomitant]
     Active Substance: DULOXETINE
     Indication: Depression
     Dosage: 60 MG, 2X/DAY
  5. GABAPENTIN [Concomitant]
     Active Substance: GABAPENTIN
     Indication: Neuralgia
     Dosage: (100MG 1 CAPSULE AT NIGHT)
  6. LOVASTATIN [Concomitant]
     Active Substance: LOVASTATIN
     Indication: Hypertension
     Dosage: (50MG ONCE A DAY AT NIGHT)
  7. MONTELUKAST [Concomitant]
     Active Substance: MONTELUKAST
     Indication: Asthma
     Dosage: 10 MG, 1X/DAY
  8. ROSUVASTATIN [Concomitant]
     Active Substance: ROSUVASTATIN
     Indication: Blood cholesterol increased
     Dosage: (20MG ONE TABLET A DAY)
  9. PREDNISONE [Concomitant]
     Active Substance: PREDNISONE
     Indication: Arthralgia
  10. FLUTICASONE [Concomitant]
     Active Substance: FLUTICASONE
     Indication: Dyspnoea
     Dosage: (50MCG TWICE A DAY)
  11. FLUTICASONE [Concomitant]
     Active Substance: FLUTICASONE
     Indication: Asthma
  12. ALBUTEROL [Concomitant]
     Active Substance: ALBUTEROL
     Indication: Asthma

REACTIONS (5)
  - Cataract [Unknown]
  - Retinal disorder [Unknown]
  - Deposit eye [Unknown]
  - Coronary artery disease [Unknown]
  - Memory impairment [Not Recovered/Not Resolved]
